FAERS Safety Report 15125819 (Version 2)
Quarter: 2020Q4

REPORT INFORMATION
  Report Type: Spontaneous
  Country: ES (occurrence: ES)
  Receive Date: 20180710
  Receipt Date: 20201221
  Transmission Date: 20210113
  Serious: Yes (Hospitalization, Other)
  Sender: FDA-Public Use
  Company Number: ES-PFIZER INC-2018273164

PATIENT
  Sex: Female

DRUGS (2)
  1. NIVOLUMAB [Suspect]
     Active Substance: NIVOLUMAB
     Indication: LUNG ADENOCARCINOMA
     Dosage: UNK
     Route: 065
     Dates: start: 201603, end: 20161128
  2. CRIZOTINIB [Suspect]
     Active Substance: CRIZOTINIB
     Indication: LUNG NEOPLASM
     Dosage: UNK
     Route: 065

REACTIONS (13)
  - Discomfort [Unknown]
  - Pancreatic failure [Unknown]
  - Scoliosis [Unknown]
  - Pleural effusion [Unknown]
  - Fibula fracture [Unknown]
  - Fall [Unknown]
  - Diarrhoea [Recovering/Resolving]
  - Neoplasm progression [Unknown]
  - Intervertebral disc protrusion [Unknown]
  - Pulmonary embolism [Unknown]
  - Intervertebral disc disorder [Unknown]
  - Salpingitis [Unknown]
  - Colitis [Unknown]

NARRATIVE: CASE EVENT DATE: 201610
